FAERS Safety Report 18078230 (Version 2)
Quarter: 2020Q3

REPORT INFORMATION
  Report Type: Spontaneous
  Country: US (occurrence: US)
  Receive Date: 20200728
  Receipt Date: 20200825
  Transmission Date: 20201103
  Serious: Yes (Hospitalization, Other)
  Sender: FDA-Public Use
  Company Number: US-CIPLA LTD.-2020US04943

PATIENT

DRUGS (1)
  1. NADOLOL. [Suspect]
     Active Substance: NADOLOL
     Indication: BLOOD PRESSURE ABNORMAL
     Dosage: 10 MILLIGRAM, TID
     Route: 048

REACTIONS (8)
  - Inappropriate schedule of product administration [Unknown]
  - Product physical issue [Unknown]
  - Incorrect dose administered [Unknown]
  - Blindness [Unknown]
  - Wrong technique in product usage process [Unknown]
  - Transient ischaemic attack [Unknown]
  - Stroke in evolution [Not Recovered/Not Resolved]
  - Exposure to radiation [Unknown]

NARRATIVE: CASE EVENT DATE: 2020
